FAERS Safety Report 13950016 (Version 2)
Quarter: 2018Q1

REPORT INFORMATION
  Report Type: Spontaneous
  Country: US (occurrence: US)
  Receive Date: 20170908
  Receipt Date: 20180112
  Transmission Date: 20180508
  Serious: Yes (Hospitalization, Other)
  Sender: FDA-Public Use
  Company Number: US-DSJP-DSU-2017-135485

PATIENT

DRUGS (1)
  1. BENICAR HCT [Suspect]
     Active Substance: HYDROCHLOROTHIAZIDE\OLMESARTAN MEDOXOMIL
     Indication: PRODUCT USED FOR UNKNOWN INDICATION
     Dosage: 40/12.5 MG, QD
     Route: 048
     Dates: start: 20140101

REACTIONS (5)
  - Ileus [Recovered/Resolved]
  - Acute kidney injury [Recovering/Resolving]
  - Diverticulum intestinal [Unknown]
  - Diverticulitis [Recovered/Resolved]
  - Pancreatitis acute [Unknown]

NARRATIVE: CASE EVENT DATE: 201612
